FAERS Safety Report 4704379-2 (Version None)
Quarter: 2005Q2

REPORT INFORMATION
  Report Type: 
  Country: None (occurrence: None)
  Receive Date: 20050630
  Receipt Date: 20050504
  Transmission Date: 20051028
  Serious: Yes (Death, Hospitalization, Other)
  Sender: FDA-Public Use
  Company Number: US-GLAXOSMITHKLINE-A0557281A

PATIENT
  Age: 61 Year
  Sex: Female

DRUGS (2)
  1. WELLBUTRIN [Suspect]
     Indication: SMOKER
     Dosage: 100MG PER DAY
     Route: 048
     Dates: start: 20050417
  2. SEROQUEL [Concomitant]

REACTIONS (7)
  - ASPIRATION [None]
  - DEPRESSED LEVEL OF CONSCIOUSNESS [None]
  - GRAND MAL CONVULSION [None]
  - INCONTINENCE [None]
  - PULSE ABSENT [None]
  - STARING [None]
  - VOMITING [None]
